FAERS Safety Report 8547920-4 (Version None)
Quarter: 2012Q3

REPORT INFORMATION
  Report Type: 
  Country: None (occurrence: None)
  Receive Date: 20120728
  Receipt Date: 20120713
  Transmission Date: 20120928
  Serious: Yes (Hospitalization)
  Sender: FDA-Public Use
  Company Number: US-009507513-2012SP030632

PATIENT

DRUGS (8)
  1. PROVENTIL [Concomitant]
  2. LASIX [Concomitant]
  3. LISINOPRIL [Concomitant]
  4. DULERA [Suspect]
     Indication: ASTHMA
     Dosage: 2 DF, BID (100/5)
     Dates: start: 20111001
  5. PRILOSEC [Concomitant]
  6. GLIPIZIDE [Concomitant]
     Dosage: UNK
  7. LANTUS [Concomitant]
  8. ADVAIR DISKUS 100/50 [Concomitant]

REACTIONS (2)
  - ASTHMA [None]
  - INCORRECT DOSE ADMINISTERED [None]
